FAERS Safety Report 7776956-6 (Version None)
Quarter: 2011Q3

REPORT INFORMATION
  Report Type: 
  Country: None (occurrence: None)
  Receive Date: 20110926
  Receipt Date: 20110909
  Transmission Date: 20111222
  Serious: No
  Sender: FDA-Public Use
  Company Number: US-B.I. PHARMACEUTICALS,INC./RIDGEFIELD-2011-BP-22016BP

PATIENT
  Sex: Female

DRUGS (1)
  1. VIRAMUNE [Suspect]
     Dates: start: 20110801

REACTIONS (1)
  - MEDICATION RESIDUE [None]
